FAERS Safety Report 15851140 (Version 1)
Quarter: 2019Q1

REPORT INFORMATION
  Report Type: Spontaneous
  Country: US (occurrence: US)
  Receive Date: 20190122
  Receipt Date: 20190122
  Transmission Date: 20190417
  Serious: No
  Sender: FDA-Public Use
  Company Number: US-TEVA-2019-US-996447

PATIENT

DRUGS (1)
  1. PACLITAXEL. [Suspect]
     Active Substance: PACLITAXEL
     Dosage: 1DF: 300MG/50ML
     Route: 065

REACTIONS (1)
  - Neuralgia [Unknown]

NARRATIVE: CASE EVENT DATE: 201812
